FAERS Safety Report 6682303-3 (Version None)
Quarter: 2010Q2

REPORT INFORMATION
  Report Type: 
  Country: None (occurrence: None)
  Receive Date: 20100414
  Receipt Date: 20100414
  Transmission Date: 20101027
  Serious: No
  Sender: FDA-Public Use
  Company Number: None

PATIENT
  Age: 47 Year
  Sex: Female
  Weight: 95.709 kg

DRUGS (1)
  1. REGLAN [Suspect]
     Indication: HERNIA
     Dosage: 10 MG 4X

REACTIONS (5)
  - ABDOMINAL PAIN UPPER [None]
  - EATING DISORDER [None]
  - GASTRIC DISORDER [None]
  - HEADACHE [None]
  - LOSS OF CONSCIOUSNESS [None]
